FAERS Safety Report 24112901 (Version 1)
Quarter: 2024Q3

REPORT INFORMATION
  Report Type: Spontaneous
  Country: US (occurrence: US)
  Receive Date: 20240719
  Receipt Date: 20240719
  Transmission Date: 20241016
  Serious: No
  Sender: UPSHER-SMITH
  Company Number: US-UPSHER-SMITH LABORATORIES, LLC-2024USL00354

PATIENT
  Sex: Male
  Weight: 104.31 kg

DRUGS (1)
  1. TESTOSTERONE [Suspect]
     Active Substance: TESTOSTERONE
     Dosage: UNK, APPLY IT TOWARDS THE SHOULDER ON THE BACK
     Route: 061

REACTIONS (2)
  - Pain of skin [Not Recovered/Not Resolved]
  - Application site pain [Not Recovered/Not Resolved]
